FAERS Safety Report 21415228 (Version 2)
Quarter: 2023Q1

REPORT INFORMATION
  Report Type: Spontaneous
  Country: US (occurrence: US)
  Receive Date: 20221006
  Receipt Date: 20230117
  Transmission Date: 20230417
  Serious: No
  Sender: FDA-Public Use
  Company Number: US-SA-SAC20221003000533

PATIENT
  Age: 70 Year
  Sex: Female

DRUGS (15)
  1. DUPIXENT [Suspect]
     Active Substance: DUPILUMAB
     Indication: Rhinitis allergic
     Dosage: 300 MG, QOW
     Route: 058
     Dates: start: 20211102
  2. HYDROCHLOROTHIAZIDE [Concomitant]
     Active Substance: HYDROCHLOROTHIAZIDE
  3. AMMONIUM LACTATE [Concomitant]
     Active Substance: AMMONIUM LACTATE
  4. AMOXICILLIN [Concomitant]
     Active Substance: AMOXICILLIN
  5. CLINDAMYCIN [Concomitant]
     Active Substance: CLINDAMYCIN
  6. CLOBETASOL PROPIONATE [Concomitant]
     Active Substance: CLOBETASOL PROPIONATE
  7. DILTIAZEM [Concomitant]
     Active Substance: DILTIAZEM
  8. LANTUS [Concomitant]
     Active Substance: INSULIN GLARGINE
  9. EZETIMIBE [Concomitant]
     Active Substance: EZETIMIBE
  10. LISINOPRIL [Concomitant]
     Active Substance: LISINOPRIL
  11. PREMARIN [Concomitant]
     Active Substance: ESTROGENS, CONJUGATED
  12. TACROLIMUS [Concomitant]
     Active Substance: TACROLIMUS
  13. VENTOLIN HFA [Concomitant]
     Active Substance: ALBUTEROL SULFATE
  14. INSULIN NOS [Concomitant]
     Active Substance: INSULIN NOS
  15. TRIAMCINOLONE [Concomitant]
     Active Substance: TRIAMCINOLONE

REACTIONS (7)
  - Rash [Not Recovered/Not Resolved]
  - Myalgia [Not Recovered/Not Resolved]
  - Condition aggravated [Not Recovered/Not Resolved]
  - Mobility decreased [Not Recovered/Not Resolved]
  - Balance disorder [Not Recovered/Not Resolved]
  - Disturbance in attention [Not Recovered/Not Resolved]
  - Product use in unapproved indication [Unknown]

NARRATIVE: CASE EVENT DATE: 20211101
